FAERS Safety Report 6557665-8 (Version None)
Quarter: 2010Q1

REPORT INFORMATION
  Report Type: 
  Country: None (occurrence: None)
  Receive Date: 20100129
  Receipt Date: 20091130
  Transmission Date: 20100710
  Serious: No
  Sender: FDA-Public Use
  Company Number: A0807850A

PATIENT
  Sex: Male

DRUGS (1)
  1. COMBIVIR [Suspect]
     Indication: HIV INFECTION
     Route: 048
     Dates: start: 20090901

REACTIONS (3)
  - ABDOMINAL DISCOMFORT [None]
  - MALAISE [None]
  - PRODUCT QUALITY ISSUE [None]
